FAERS Safety Report 6649110-9 (Version None)
Quarter: 2010Q1

REPORT INFORMATION
  Report Type: 
  Country: None (occurrence: None)
  Receive Date: 20100324
  Receipt Date: 20100315
  Transmission Date: 20100710
  Serious: Yes (Congenital Anomaly, Other)
  Sender: FDA-Public Use
  Company Number: JP-JNJFOC-20100102836

PATIENT
  Sex: Female
  Weight: 3.12 kg

DRUGS (5)
  1. RISPERDAL [Suspect]
     Indication: DRUG EXPOSURE DURING PREGNANCY
     Route: 064
  2. RISPERDAL [Suspect]
     Route: 064
  3. AMOXAN [Suspect]
     Indication: DRUG EXPOSURE DURING PREGNANCY
     Route: 064
  4. NELBON [Suspect]
     Indication: DRUG EXPOSURE DURING PREGNANCY
     Route: 064
  5. LONASEN [Suspect]
     Indication: DRUG EXPOSURE DURING PREGNANCY
     Dosage: 2-4 MG
     Route: 064

REACTIONS (1)
  - VENTRICULAR SEPTAL DEFECT [None]
